FAERS Safety Report 24698919 (Version 3)
Quarter: 2024Q4

REPORT INFORMATION
  Report Type: Spontaneous
  Country: US (occurrence: US)
  Receive Date: 20241205
  Receipt Date: 20241229
  Transmission Date: 20250114
  Serious: No
  Sender: ROCHE
  Company Number: US-ROCHE-10000146926

PATIENT
  Sex: Female
  Weight: 67.59 kg

DRUGS (38)
  1. XOLAIR PFS [Suspect]
     Active Substance: OMALIZUMAB
     Indication: Asthma
     Dosage: DOSE AND STRENGTH:150MG/ML, 75MG/ML
     Route: 058
     Dates: start: 20241127
  2. XOLAIR PFS [Suspect]
     Active Substance: OMALIZUMAB
     Route: 058
     Dates: start: 20241127
  3. XOLAIR PFS [Suspect]
     Active Substance: OMALIZUMAB
     Route: 058
     Dates: start: 202102
  4. XOLAIR PFS [Suspect]
     Active Substance: OMALIZUMAB
     Route: 058
  5. NEXIUM [Concomitant]
     Active Substance: ESOMEPRAZOLE MAGNESIUM
     Dates: start: 20211130
  6. ALBUTEROL 108(90)MCG/ACT inhaler [Concomitant]
     Indication: Wheezing
     Dates: start: 20241007
  7. ASPIRIN [Concomitant]
     Active Substance: ASPIRIN
     Route: 048
  8. ATORVASTATIN (LIPITOR) 20 MG [Concomitant]
     Dosage: 90 TABLET
     Route: 048
     Dates: start: 20231016
  9. BUPROPION(WELLBUTRIN SR) [Concomitant]
     Dosage: 180 TABLET
     Dates: start: 20231016
  10. CINNAMON PO [Concomitant]
     Route: 048
  11. CYCLOBENZAPRINE [Concomitant]
     Active Substance: CYCLOBENZAPRINE
     Route: 048
  12. FEXOFENADINE HCL (ALLEGRA PO) [Concomitant]
     Route: 048
  13. FLUTICASONE FUROATE-VILANTEROL [Concomitant]
     Dosage: INHALE 1 PUFF  INTO THE LUNGS DAILY.
     Route: 055
     Dates: start: 20240620
  14. FLUTICASONE NASAL (FLONATE) [Concomitant]
     Dosage: EACH NARIS
     Dates: start: 20240729
  15. NEURONTIN [Concomitant]
     Active Substance: GABAPENTIN
     Dosage: TAKE 100 MG BY MOUTH 3 TIME DAILY
     Route: 048
     Dates: start: 20220208
  16. GLUCOSE BLOOD TEST STRIP [Concomitant]
  17. GUAIFENESIN-DEXTROMETHORPHANE [Concomitant]
     Indication: Cough
     Route: 048
     Dates: start: 20241206
  18. HYDROCORTISONE 2.5 % [Concomitant]
     Dosage: TWICE DAILY AS NEEDED
     Route: 061
     Dates: start: 20230326
  19. HYDROXYZINE [Concomitant]
     Active Substance: HYDROXYZINE HYDROCHLORIDE
     Dosage: TAKE 1 TABLET BY MOUTH EVERY NIGHT
     Dates: start: 20240201
  20. IBUPROFEN [Concomitant]
     Active Substance: IBUPROFEN
     Indication: Pain
     Route: 048
     Dates: start: 20241014
  21. ALBUTEROL\IPRATROPIUM [Concomitant]
     Active Substance: ALBUTEROL\IPRATROPIUM
     Dosage: 1 VIAL VIA NEBULIZER EVERY 4-6 HOURS AS NEEDED
     Dates: start: 20240122
  22. LEVOFLOXACIN [Concomitant]
     Active Substance: LEVOFLOXACIN
     Route: 048
     Dates: start: 20241118
  23. LISINOPRIL [Concomitant]
     Active Substance: LISINOPRIL
     Route: 048
     Dates: start: 20231016
  24. LYLLANA [Concomitant]
     Active Substance: ESTRADIOL
     Dosage: APPLY 1 PATCH TOPICALLY TO THE SKIN 2 TIMES EVERY WEEK
     Route: 061
     Dates: start: 20240626
  25. MAGNESIUM [Concomitant]
     Active Substance: MAGNESIUM
     Dosage: BY MOUTH DAILY
     Route: 048
  26. METFORMINE ER [Concomitant]
     Route: 048
     Dates: start: 20240921
  27. MIRABEGRON [Concomitant]
     Active Substance: MIRABEGRON
     Route: 048
  28. MIRTAZAPINE [Concomitant]
     Active Substance: MIRTAZAPINE
     Route: 048
     Dates: start: 20240516
  29. MONTELUKAST [Concomitant]
     Active Substance: MONTELUKAST SODIUM
     Route: 048
     Dates: start: 20240122
  30. NITROFURANTOIN  MACROCRYSTAL-MONOHYDRATE [Concomitant]
     Route: 048
  31. NITROGLYCERIN [Concomitant]
     Active Substance: NITROGLYCERIN
     Indication: Chest pain
     Dosage: EVERY 5 MIN. AS NEEDED
     Route: 048
     Dates: start: 20230523
  32. ONDANSETRON(ZOFRAN) [Concomitant]
     Route: 048
     Dates: start: 20240627
  33. PREDNISONE [Concomitant]
     Active Substance: PREDNISONE
     Dosage: PREDNISONE TAPER BY MOUTH AS PREDNISONE 40MG FOR 3 DAYS, THEN 30MG FOR 3 DAYS, THEN 20MG FOR 3 DAYS,
     Dates: start: 20241113
  34. PROCALOPRIDE [Concomitant]
  35. RIMEGEPANT [Concomitant]
     Active Substance: RIMEGEPANT
     Dosage: AS NEEDED
     Route: 048
  36. SPIRIVA RESPIMAT [Concomitant]
     Active Substance: TIOTROPIUM BROMIDE
     Dosage: 2 PUFFS INTO THE LUNGS DAILY
     Route: 055
     Dates: start: 20241007
  37. SUCRALFATE [Concomitant]
     Active Substance: SUCRALFATE
     Route: 048
     Dates: start: 20200531
  38. LEVAQUIN [Concomitant]
     Active Substance: LEVOFLOXACIN
     Dosage: 500MG #7 TABLETS AS 1 TABLET BY MOUTH DAILY
     Route: 048

REACTIONS (2)
  - Pneumonia [Unknown]
  - Productive cough [Recovered/Resolved]
